FAERS Safety Report 9010999 (Version 5)
Quarter: 2013Q4

REPORT INFORMATION
  Report Type: Spontaneous
  Country: US (occurrence: US)
  Receive Date: 20130109
  Receipt Date: 20131016
  Transmission Date: 20140711
  Serious: Yes (Hospitalization, Other)
  Sender: FDA-Public Use
  Company Number: US-009507513-1203USA02454

PATIENT
  Sex: Female
  Weight: 91.16 kg

DRUGS (5)
  1. FOSAMAX [Suspect]
     Indication: OSTEOPOROSIS
     Dosage: 40 MG, UNK
     Route: 048
     Dates: start: 1998, end: 201110
  2. FOSAMAX [Suspect]
     Dosage: 70 MG, UNK
     Route: 048
  3. HORMONES (UNSPECIFIED) [Concomitant]
     Dosage: UNK
     Route: 048
     Dates: start: 1980, end: 1999
  4. VITAMINS (UNSPECIFIED) [Concomitant]
     Dosage: UNK
     Dates: start: 1970
  5. CORTICOSTEROIDS (UNSPECIFIED) [Concomitant]
     Dosage: UNK
     Route: 048
     Dates: start: 1991

REACTIONS (22)
  - Femur fracture [Recovered/Resolved]
  - Humerus fracture [Recovered/Resolved]
  - Fall [Recovered/Resolved]
  - Intramedullary rod insertion [Recovered/Resolved]
  - Open reduction of fracture [Recovered/Resolved]
  - Upper limb fracture [Recovered/Resolved]
  - Upper limb fracture [Recovered/Resolved]
  - Low turnover osteopathy [Unknown]
  - Tooth extraction [Unknown]
  - Loose tooth [Unknown]
  - Gout [Unknown]
  - Hypercholesterolaemia [Unknown]
  - Vitamin D deficiency [Unknown]
  - Calcium deficiency [Unknown]
  - Diabetes mellitus [Not Recovered/Not Resolved]
  - Hysterectomy [Unknown]
  - Bladder repair [Unknown]
  - Periodontitis [Unknown]
  - Muscle strain [Recovering/Resolving]
  - Blood pressure inadequately controlled [Unknown]
  - Musculoskeletal pain [Unknown]
  - Gastrooesophageal reflux disease [Unknown]
